FAERS Safety Report 10699787 (Version 1)
Quarter: 2015Q1

REPORT INFORMATION
  Report Type: Spontaneous
  Country: US (occurrence: None)
  Receive Date: 20150108
  Receipt Date: 20150108
  Transmission Date: 20150721
  Serious: Yes (Hospitalization)
  Sender: FDA-Public Use
  Company Number: None

PATIENT
  Age: 56 Year
  Sex: Female
  Weight: 93.5 kg

DRUGS (1)
  1. OXCARBAZEPINE. [Suspect]
     Active Substance: OXCARBAZEPINE
     Indication: SEIZURE
     Dates: start: 20130617

REACTIONS (6)
  - Hyponatraemia [None]
  - Asthenia [None]
  - Dizziness [None]
  - Withdrawal syndrome [None]
  - Balance disorder [None]
  - Tremor [None]

NARRATIVE: CASE EVENT DATE: 20140910
